FAERS Safety Report 15320385 (Version 1)
Quarter: 2018Q3

REPORT INFORMATION
  Report Type: Spontaneous
  Country: US (occurrence: US)
  Receive Date: 20180827
  Receipt Date: 20180827
  Transmission Date: 20181010
  Serious: No
  Sender: FDA-Public Use
  Company Number: US-SUN PHARMACEUTICAL INDUSTRIES LTD-2018US-177782

PATIENT
  Age: 10 Year
  Sex: Female

DRUGS (3)
  1. ULTRAVATE [Suspect]
     Active Substance: HALOBETASOL PROPIONATE
     Indication: DERMATITIS ATOPIC
     Dosage: UNK UNK, BID
     Route: 061
     Dates: start: 20180531, end: 20180614
  2. ULTRAVATE [Suspect]
     Active Substance: HALOBETASOL PROPIONATE
     Indication: ERYTHEMA
  3. ULTRAVATE [Suspect]
     Active Substance: HALOBETASOL PROPIONATE
     Indication: RASH MACULAR

REACTIONS (3)
  - Product use issue [Recovered/Resolved]
  - Off label use [Recovered/Resolved]
  - Product administered at inappropriate site [Recovered/Resolved]

NARRATIVE: CASE EVENT DATE: 20180531
